FAERS Safety Report 6262463-9 (Version None)
Quarter: 2009Q3

REPORT INFORMATION
  Report Type: 
  Country: None (occurrence: None)
  Receive Date: 20090709
  Receipt Date: 20090625
  Transmission Date: 20100115
  Serious: Yes (Hospitalization)
  Sender: FDA-Public Use
  Company Number: FR-GENENTECH-282122

PATIENT
  Sex: Male

DRUGS (8)
  1. RITUXIMAB [Suspect]
     Indication: MANTLE CELL LYMPHOMA
     Dosage: 750 UNK, UNK
     Route: 065
     Dates: start: 20081124, end: 20090427
  2. CYCLOPHOSPHAMIDE [Suspect]
     Indication: MANTLE CELL LYMPHOMA
     Dosage: 1500 UNK, UNK
     Route: 065
     Dates: start: 20081124, end: 20090427
  3. DOXORUBICIN HCL [Suspect]
     Indication: MANTLE CELL LYMPHOMA
     Dosage: 100 UNK, UNK
     Route: 065
     Dates: start: 20081124, end: 20090427
  4. VINCRISTINE [Suspect]
     Indication: MANTLE CELL LYMPHOMA
     Dosage: 120 UNK, UNK
     Route: 065
     Dates: start: 20081124, end: 20090203
  5. PREDNISONE [Suspect]
     Indication: MANTLE CELL LYMPHOMA
     Dosage: 120 MG, UNK
     Route: 065
     Dates: start: 20081124, end: 20090429
  6. ZENATE [Concomitant]
     Indication: DRUG USE FOR UNKNOWN INDICATION
     Dosage: UNK
     Dates: start: 20090224
  7. OFLOCET [Concomitant]
     Indication: DRUG USE FOR UNKNOWN INDICATION
     Dosage: UNK
     Dates: start: 20090224
  8. NEULASTA [Concomitant]
     Indication: DRUG USE FOR UNKNOWN INDICATION
     Dosage: UNK
     Dates: end: 20090408

REACTIONS (2)
  - HYPERTHERMIA [None]
  - PYREXIA [None]
